FAERS Safety Report 17601057 (Version 1)
Quarter: 2020Q1

REPORT INFORMATION
  Report Type: Report from Study
  Country: MX (occurrence: MX)
  Receive Date: 20200330
  Receipt Date: 20200330
  Transmission Date: 20200409
  Serious: Yes (Other)
  Sender: FDA-Public Use
  Company Number: NVSC2020MX086874

PATIENT
  Age: 79 Year
  Sex: Female
  Weight: 53 kg

DRUGS (2)
  1. EXFORGE [Suspect]
     Active Substance: AMLODIPINE BESYLATE\VALSARTAN
     Indication: HYPERTENSION
     Dosage: 1 DF (5/160 MG), QD (STARTED APPROXIMATELY 15 YEARS AGO)
     Route: 048
  2. GALVUS MET [Suspect]
     Active Substance: METFORMIN HYDROCHLORIDE\VILDAGLIPTIN
     Indication: DIABETES MELLITUS
     Dosage: 1 DF (50/850 MG), BID (MORNING AND NIGHT)
     Route: 048
     Dates: start: 2001

REACTIONS (7)
  - Appendicitis [Unknown]
  - Throat irritation [Unknown]
  - Dry throat [Unknown]
  - Fluid imbalance [Unknown]
  - Constipation [Unknown]
  - Dysphonia [Recovering/Resolving]
  - Oral infection [Unknown]
